FAERS Safety Report 23477612 (Version 1)
Quarter: 2024Q1

REPORT INFORMATION
  Report Type: Report from Study
  Country: US (occurrence: US)
  Receive Date: 20240204
  Receipt Date: 20240204
  Transmission Date: 20240409
  Serious: No
  Sender: FDA-Public Use
  Company Number: US-EXELIXIS-CABO-23066023

PATIENT
  Age: 61 Year
  Sex: Male

DRUGS (1)
  1. CABOMETYX [Suspect]
     Active Substance: CABOZANTINIB S-MALATE
     Indication: Renal cancer
     Dosage: 40 MG, (MONDAY, TUESDAY, WEDNESDAY, FRIDAY AND SATURDAY; OFF ON THURSDAY AND SUNDAY)
     Route: 048
     Dates: start: 20211012

REACTIONS (9)
  - Malaise [Unknown]
  - Blood pressure fluctuation [Unknown]
  - Fatigue [Unknown]
  - Diarrhoea [Unknown]
  - Weight decreased [Unknown]
  - Taste disorder [Unknown]
  - Dyspnoea [Unknown]
  - Influenza like illness [Unknown]
  - Inappropriate schedule of product administration [Unknown]

NARRATIVE: CASE EVENT DATE: 20211012
